FAERS Safety Report 15304988 (Version 1)
Quarter: 2018Q3

REPORT INFORMATION
  Report Type: Spontaneous
  Country: US (occurrence: US)
  Receive Date: 20180810
  Receipt Date: 20180810
  Transmission Date: 20181010
  Serious: Yes (Hospitalization)
  Sender: FDA-Public Use
  Company Number: None

PATIENT
  Age: 72 Year
  Sex: Male

DRUGS (12)
  1. LOSARTAN POT [Concomitant]
     Active Substance: LOSARTAN POTASSIUM
  2. MULTI VITAMIN [Concomitant]
     Active Substance: VITAMINS
  3. POT CL MICRO [Concomitant]
  4. DIGOX [Concomitant]
     Active Substance: DIGOXIN
  5. CARVEDILOL. [Concomitant]
     Active Substance: CARVEDILOL
  6. FUROSEMIDE. [Concomitant]
     Active Substance: FUROSEMIDE
  7. POTASSIUM [Concomitant]
     Active Substance: POTASSIUM
  8. ZOLPIDEM [Concomitant]
     Active Substance: ZOLPIDEM\ZOLPIDEM TARTRATE
  9. DIGOXIN. [Concomitant]
     Active Substance: DIGOXIN
  10. JADENU [Suspect]
     Active Substance: DEFERASIROX
     Indication: CHELATION THERAPY
     Route: 048
     Dates: start: 20161214
  11. SPIRONACTOLONE [Concomitant]
  12. OXYCODONE [Concomitant]
     Active Substance: OXYCODONE

REACTIONS (3)
  - Diarrhoea [None]
  - Cardiac disorder [None]
  - Weight decreased [None]

NARRATIVE: CASE EVENT DATE: 20180718
